FAERS Safety Report 16044297 (Version 1)
Quarter: 2019Q1

REPORT INFORMATION
  Report Type: Spontaneous
  Country: KR (occurrence: KR)
  Receive Date: 20190306
  Receipt Date: 20190306
  Transmission Date: 20190418
  Serious: Yes (Death, Hospitalization, Other)
  Sender: FDA-Public Use
  Company Number: KR-009507513-1903KOR001262

PATIENT
  Sex: Female

DRUGS (17)
  1. FRESOFOL [Concomitant]
     Dosage: QUANTITY1, DAYS 1
     Dates: start: 20181001
  2. GLYCOPYRROLATE REYON [Concomitant]
     Dosage: QUANTITY 1, DAYS 1
     Dates: start: 20181001
  3. NASEA [Concomitant]
     Active Substance: RAMOSETRON HYDROCHLORIDE
     Dosage: QUANTITY 10, DAYS 1
     Dates: start: 20181001, end: 20181011
  4. PROFA [Concomitant]
     Dosage: QUANTITY 3, DAYS 1
     Dates: start: 20181001, end: 20181104
  5. ESMERON [Concomitant]
     Active Substance: ROCURONIUM BROMIDE
     Dosage: QUANTITY1, DAYS 1
     Dates: start: 20181001
  6. AVELOX [Concomitant]
     Active Substance: MOXIFLOXACIN HYDROCHLORIDE
     Dosage: QUANTITY 8, DAYS 1
     Dates: start: 20181029, end: 20181105
  7. SEVORAN [Concomitant]
     Active Substance: SEVOFLURANE
     Dosage: QUANTITY 64.5, DAYS 1
     Dates: start: 20181001
  8. NORPIN INJECTION [Concomitant]
     Dosage: QUANTITY 4, DAYS 1
     Dates: start: 20181001
  9. VANCOMYCIN [Concomitant]
     Active Substance: VANCOMYCIN
     Dosage: QUANITY 23, DAYS 1
     Dates: start: 20181001, end: 20181105
  10. PENIRAMIN [Concomitant]
     Dosage: UNK, QUANTITY 1, DAYS 1
     Dates: start: 20181029
  11. KEYTRUDA [Suspect]
     Active Substance: PEMBROLIZUMAB
     Indication: LUNG ADENOCARCINOMA
     Dosage: UNK, QUANTITY 2, DAYS 1
     Dates: start: 201810
  12. TAZOLACTAM [Concomitant]
     Dosage: QUANTITY 17, DAYS 1
     Dates: start: 20181001, end: 20181005
  13. CRAVIT [Concomitant]
     Active Substance: LEVOFLOXACIN
     Dosage: UNK, QUANTITY 4. DAYS 1
     Dates: start: 20181025, end: 20181029
  14. MACPERAN [Concomitant]
     Active Substance: METOCLOPRAMIDE HYDROCHLORIDE
     Dosage: QUANTITY 1, DAYS 1
     Dates: start: 20181026
  15. TRIDOL (TRAMADOL HYDROCHLORIDE) [Concomitant]
     Dosage: QUANTITY 2, DAYS 1
     Dates: start: 20181003, end: 20181016
  16. DENOGAN [Concomitant]
     Active Substance: PROPACETAMOL HYDROCHLORIDE
     Dosage: UNK, QUANTYTI 7, DAYS 1
     Dates: start: 20181030, end: 20181104
  17. MAXIPIME [Concomitant]
     Active Substance: CEFEPIME HYDROCHLORIDE
     Dosage: UNK, QUANTITY 12, DAYS 1
     Dates: start: 20181103, end: 20181105

REACTIONS (3)
  - Adverse event [Unknown]
  - Death [Fatal]
  - Product use in unapproved indication [Unknown]

NARRATIVE: CASE EVENT DATE: 2018
